FAERS Safety Report 7437082-9 (Version None)
Quarter: 2011Q2

REPORT INFORMATION
  Report Type: 
  Country: None (occurrence: None)
  Receive Date: 20110426
  Receipt Date: 20110413
  Transmission Date: 20111010
  Serious: Yes (Other)
  Sender: FDA-Public Use
  Company Number: PHHY2011FR29172

PATIENT
  Sex: Male
  Weight: 92 kg

DRUGS (2)
  1. NEXAVAR [Concomitant]
  2. RASILEZ [Suspect]
     Indication: HYPERTENSION
     Dosage: 1 DF, QD
     Dates: start: 20100101

REACTIONS (4)
  - GASTROENTERITIS [None]
  - WEIGHT DECREASED [None]
  - DEHYDRATION [None]
  - RENAL FAILURE ACUTE [None]
